FAERS Safety Report 5679582-8 (Version None)
Quarter: 2008Q1

REPORT INFORMATION
  Report Type: 
  Country: None (occurrence: None)
  Receive Date: 20080324
  Receipt Date: 20080311
  Transmission Date: 20080703
  Serious: Yes (Other)
  Sender: FDA-Public Use
  Company Number: 430020J08USA

PATIENT
  Age: 37 Year
  Sex: Female
  Weight: 97.5234 kg

DRUGS (6)
  1. NOVANTRONE [Suspect]
     Indication: MULTIPLE SCLEROSIS
  2. ULTRAM [Concomitant]
  3. RITALIN [Concomitant]
  4. BACLOFEN [Concomitant]
  5. METFORMIN HCL [Concomitant]
  6. AMITRIPTYLINE HCL [Concomitant]

REACTIONS (1)
  - CARDIOMYOPATHY [None]
